FAERS Safety Report 23744744 (Version 1)
Quarter: 2024Q2

REPORT INFORMATION
  Report Type: Report from Study
  Country: KR (occurrence: KR)
  Receive Date: 20240415
  Receipt Date: 20240415
  Transmission Date: 20240716
  Serious: Yes (Other)
  Sender: FDA-Public Use
  Company Number: KR-GUERBET / KOREA-KR-20240015

PATIENT
  Age: 59 Year
  Sex: Male

DRUGS (3)
  1. LIPIODOL [Suspect]
     Active Substance: ETHIODIZED OIL
     Indication: Transcatheter arterial chemoembolisation
     Dosage: C-TACE WAS PERFORMED USING STANDARD ANGIOGRAPHIC TECHNIQUES WITH A CHEMO-LIPIODOL MIXTURE AND GELATI
     Route: 013
  2. DOXORUBICIN [Suspect]
     Active Substance: DOXORUBICIN
     Indication: Transcatheter arterial chemoembolisation
     Dosage: C-TACE WAS PERFORMED USING STANDARD ANGIOGRAPHIC TECHNIQUES WITH A CHEMO-LIPIODOL MIXTURE AND GELATI
     Route: 013
  3. GELATIN [Suspect]
     Active Substance: GELATIN
     Indication: Transcatheter arterial chemoembolisation
     Dosage: C-TACE WAS PERFORMED USING STANDARD ANGIOGRAPHIC TECHNIQUES WITH A CHEMO-LIPIODOL MIXTURE AND GELATI
     Route: 013

REACTIONS (2)
  - Cholecystitis acute [Recovered/Resolved]
  - Product use issue [Recovered/Resolved]
